FAERS Safety Report 13986648 (Version 1)
Quarter: 2017Q3

REPORT INFORMATION
  Report Type: Spontaneous
  Country: US (occurrence: US)
  Receive Date: 20170919
  Receipt Date: 20170919
  Transmission Date: 20171128
  Serious: Yes (Other)
  Sender: FDA-Public Use
  Company Number: US-GLAXOSMITHKLINE-US2017GSK144401

PATIENT
  Sex: Female

DRUGS (1)
  1. NUCALA [Suspect]
     Active Substance: MEPOLIZUMAB
     Indication: ASTHMA
     Dosage: UNK

REACTIONS (5)
  - Suture insertion [Unknown]
  - Tooth fracture [Unknown]
  - Loss of consciousness [Unknown]
  - Eye contusion [Unknown]
  - Laceration [Unknown]
